FAERS Safety Report 5702040-9 (Version None)
Quarter: 2008Q2

REPORT INFORMATION
  Report Type: 
  Country: None (occurrence: None)
  Receive Date: 20080411
  Receipt Date: 20070521
  Transmission Date: 20081010
  Serious: Yes (Congenital Anomaly)
  Sender: FDA-Public Use
  Company Number: US-ABBOTT-07P-163-0369146-00

PATIENT
  Sex: Female

DRUGS (1)
  1. DEPAKOTE [Suspect]
     Indication: DRUG EXPOSURE DURING PREGNANCY
     Route: 064

REACTIONS (5)
  - AMNIOCENTESIS ABNORMAL [None]
  - CONGENITAL PULMONARY ARTERY ANOMALY [None]
  - CONGENITAL PULMONARY VALVE ATRESIA [None]
  - FALLOT'S TETRALOGY [None]
  - POLYDACTYLY [None]
